FAERS Safety Report 25268526 (Version 1)
Quarter: 2025Q2

REPORT INFORMATION
  Report Type: Spontaneous
  Country: PL (occurrence: PL)
  Receive Date: 20250505
  Receipt Date: 20250505
  Transmission Date: 20250716
  Serious: Yes (Hospitalization, Other)
  Sender: ACCORD
  Company Number: None

PATIENT
  Age: 31 Year
  Sex: Female

DRUGS (3)
  1. METHOTREXATE [Suspect]
     Active Substance: METHOTREXATE
     Indication: Chronic graft versus host disease
     Dosage: 5 MG, QW(1X/WEEK)
     Dates: start: 202403
  2. RUXOLITINIB [Suspect]
     Active Substance: RUXOLITINIB
     Indication: Chronic graft versus host disease
     Dates: start: 202410
  3. DEFLAZACORT [Concomitant]
     Active Substance: DEFLAZACORT
     Indication: Chronic graft versus host disease
     Dosage: 30 MG, QD

REACTIONS (5)
  - Pulmonary embolism [Recovered/Resolved with Sequelae]
  - Respiratory syncytial virus infection [Recovered/Resolved with Sequelae]
  - Infection [Recovered/Resolved with Sequelae]
  - Anisocoria [Recovered/Resolved]
  - Antinuclear antibody positive [Unknown]

NARRATIVE: CASE EVENT DATE: 20240501
